FAERS Safety Report 6554260-1 (Version None)
Quarter: 2010Q1

REPORT INFORMATION
  Report Type: 
  Country: None (occurrence: None)
  Receive Date: 20100125
  Receipt Date: 20100125
  Transmission Date: 20100710
  Serious: Yes (Other)
  Sender: FDA-Public Use
  Company Number: None

PATIENT
  Age: 11 Year
  Sex: Female
  Weight: 38.5557 kg

DRUGS (9)
  1. ALVESCO [Suspect]
     Indication: ASTHMA
     Dosage: ONE PUFF TWICE A DAY INHAL
     Route: 055
     Dates: start: 20090528, end: 20090615
  2. ALVESCO [Suspect]
     Indication: CYSTIC FIBROSIS
     Dosage: ONE PUFF TWICE A DAY INHAL
     Route: 055
     Dates: start: 20090528, end: 20090615
  3. ALBUTEROL SULFATE [Concomitant]
  4. COMOLYN SODIUM INHALATION SOLUTION [Concomitant]
  5. PULMOZYME [Concomitant]
  6. CREON [Concomitant]
  7. AZITHROMYCIN [Concomitant]
  8. NEXIUM [Concomitant]
  9. SULFAMETH [Concomitant]

REACTIONS (2)
  - BRONCHOSPASM [None]
  - DYSPNOEA [None]
